FAERS Safety Report 5718053-7 (Version None)
Quarter: 2008Q2

REPORT INFORMATION
  Report Type: 
  Country: None (occurrence: None)
  Receive Date: 20080425
  Receipt Date: 20080416
  Transmission Date: 20081010
  Serious: Yes (Hospitalization, Other)
  Sender: FDA-Public Use
  Company Number: FR-ASTRAZENECA-2008CG00491

PATIENT
  Age: 677 Month
  Sex: Male

DRUGS (9)
  1. CRESTOR [Suspect]
     Indication: HYPERCHOLESTEROLAEMIA
     Route: 048
     Dates: start: 20071123, end: 20080110
  2. RABEPRAZOLE SODIUM [Concomitant]
     Route: 048
  3. AERIUS [Concomitant]
     Route: 048
  4. ACETAMINOPHEN [Concomitant]
     Route: 048
  5. DELURSAN [Concomitant]
     Route: 048
  6. MICARDIS [Concomitant]
     Indication: HYPERTENSION
     Route: 048
  7. DILTIAZEM [Concomitant]
     Route: 048
  8. TENSTATEN [Concomitant]
     Route: 048
  9. LORAZEPAM [Concomitant]
     Route: 048

REACTIONS (3)
  - BLOOD CREATINE PHOSPHOKINASE INCREASED [None]
  - CYTOLYTIC HEPATITIS [None]
  - SERUM FERRITIN INCREASED [None]
